FAERS Safety Report 6966249-9 (Version None)
Quarter: 2010Q3

REPORT INFORMATION
  Report Type: 
  Country: None (occurrence: None)
  Receive Date: 20100903
  Receipt Date: 20100825
  Transmission Date: 20110219
  Serious: Yes (Hospitalization)
  Sender: FDA-Public Use
  Company Number: IT-US-EMD SERONO, INC.-7015704

PATIENT
  Sex: Female

DRUGS (4)
  1. REBIF [Suspect]
     Indication: MULTIPLE SCLEROSIS
     Route: 058
     Dates: start: 20041118, end: 20100421
  2. REBIF [Suspect]
     Dosage: CARTRIDGE
     Dates: start: 20100421, end: 20100712
  3. CARBAMAZEPINE [Concomitant]
     Indication: PARAESTHESIA
  4. ACE INHIBITOR/HYDROCHLOROTIAZIDE [Concomitant]

REACTIONS (11)
  - BLOOD CHLORIDE ABNORMAL [None]
  - BLOOD POTASSIUM ABNORMAL [None]
  - DYSPNOEA [None]
  - FIBRIN D DIMER INCREASED [None]
  - HAEMOGLOBIN DECREASED [None]
  - HYPERTENSION [None]
  - HYPONATRAEMIA [None]
  - RED BLOOD CELL COUNT DECREASED [None]
  - SENSE OF OPPRESSION [None]
  - THROMBOCYTOPENIA [None]
  - WHITE BLOOD CELL COUNT DECREASED [None]
